FAERS Safety Report 17118434 (Version 1)
Quarter: 2019Q4

REPORT INFORMATION
  Report Type: Spontaneous
  Country: US (occurrence: US)
  Receive Date: 20191205
  Receipt Date: 20191205
  Transmission Date: 20200122
  Serious: No
  Sender: FDA-Public Use
  Company Number: US-JNJFOC-20191131213

PATIENT
  Age: 60 Year
  Sex: Female
  Weight: 81.72 kg

DRUGS (1)
  1. WOMENS ROGAINE [Suspect]
     Active Substance: MINOXIDIL
     Indication: ALOPECIA
     Route: 061
     Dates: start: 20191113, end: 20191113

REACTIONS (1)
  - Acne [Recovered/Resolved]

NARRATIVE: CASE EVENT DATE: 201911
